FAERS Safety Report 11327012 (Version 1)
Quarter: 2015Q3

REPORT INFORMATION
  Report Type: Report from Study
  Country: CO (occurrence: CO)
  Receive Date: 20150731
  Receipt Date: 20150731
  Transmission Date: 20151125
  Serious: Yes (Death)
  Sender: FDA-Public Use
  Company Number: CO-BRISTOL-MYERS SQUIBB COMPANY-BMS-2015-049928

PATIENT
  Age: 75 Year
  Sex: Male
  Weight: 74 kg

DRUGS (1)
  1. CETUXIMAB [Suspect]
     Active Substance: CETUXIMAB
     Indication: HEAD AND NECK CANCER
     Dosage: 450 MG, QWK
     Route: 042

REACTIONS (1)
  - Disease complication [Fatal]

NARRATIVE: CASE EVENT DATE: 20150715
